FAERS Safety Report 24211411 (Version 1)
Quarter: 2024Q3

REPORT INFORMATION
  Report Type: Spontaneous
  Country: CA (occurrence: CA)
  Receive Date: 20240814
  Receipt Date: 20240814
  Transmission Date: 20241017
  Serious: Yes (Other)
  Sender: PFIZER
  Company Number: CA-PFIZER INC-PV202400105268

PATIENT
  Age: 59 Year
  Sex: Female

DRUGS (4)
  1. METHOTREXATE SODIUM [Suspect]
     Active Substance: METHOTREXATE SODIUM
     Dosage: UNK
     Dates: start: 2016, end: 2018
  2. MESALAMINE [Suspect]
     Active Substance: MESALAMINE
  3. REMICADE [Concomitant]
     Active Substance: INFLIXIMAB
     Dosage: UNK UNK, CYCLIC (Q 6 WEEK TREATMENTS)
     Dates: start: 2016
  4. ENTOCORT [Concomitant]
     Active Substance: BUDESONIDE
     Indication: Condition aggravated
     Dosage: UNK, AS NEEDED FOR FLARES
     Dates: start: 2014

REACTIONS (2)
  - Breast cancer female [Unknown]
  - Drug intolerance [Unknown]
